FAERS Safety Report 17274734 (Version 1)
Quarter: 2020Q1

REPORT INFORMATION
  Report Type: Other
  Country: PT (occurrence: PT)
  Receive Date: 20200115
  Receipt Date: 20200115
  Transmission Date: 20200409
  Serious: Yes (Hospitalization)
  Sender: FDA-Public Use
  Company Number: PT-CELLTRION INC.-2020PT017612

PATIENT

DRUGS (7)
  1. TRASTUZUMAB EMTANSINE [Suspect]
     Active Substance: ADO-TRASTUZUMAB EMTANSINE
     Indication: BREAST CANCER METASTATIC
     Dosage: 1, EVERY 3 WEEKS
     Route: 042
     Dates: start: 20170731
  2. TRASTUZUMAB (UNKNOWN) [Suspect]
     Active Substance: TRASTUZUMAB
     Indication: BREAST CANCER METASTATIC
     Dosage: 6 MICROGRAM/KILOGRAM EVERY 3 WEEKS (MOST RECENT DOSE PRIOR TO EVENT : 04/MAY/2017)
     Route: 042
     Dates: start: 20170120
  3. OLANZAPINA [Concomitant]
     Active Substance: OLANZAPINE
     Dosage: UNK
     Route: 065
     Dates: start: 20170615
  4. TAZOBACTAM [Concomitant]
     Active Substance: TAZOBACTAM
     Indication: LARGE INTESTINE INFECTION
     Dosage: UNK
     Route: 065
  5. PERTUZUMAB. [Suspect]
     Active Substance: PERTUZUMAB
     Indication: BREAST CANCER METASTATIC
     Dosage: 420 UG EVERY 3 WEEKS; MOST RECENT DOSE PRIOR TO THE EVENT: 04/MAY/2017
     Route: 042
     Dates: start: 20170213, end: 20170323
  6. DOCETAXEL. [Suspect]
     Active Substance: DOCETAXEL
     Indication: BREAST CANCER METASTATIC
     Dosage: 75 UG/M2 EVERY 3 WEEKS; DATE OF MOST RECENT DOSE PRIOR TO EVENT:04/MAY/2017
     Route: 042
     Dates: start: 20170120
  7. OMEPRAZOL [OMEPRAZOLE] [Concomitant]
     Active Substance: OMEPRAZOLE
     Dosage: UNK
     Route: 065
     Dates: start: 20170615

REACTIONS (7)
  - Colitis [Recovered/Resolved]
  - Diarrhoea [Recovering/Resolving]
  - Ejection fraction decreased [Recovered/Resolved]
  - Ejection fraction decreased [Recovered/Resolved]
  - Large intestine infection [Recovered/Resolved]
  - General physical health deterioration [Recovered/Resolved]
  - Underdose [Unknown]

NARRATIVE: CASE EVENT DATE: 20170413
